FAERS Safety Report 8793775 (Version 2)
Quarter: 2012Q4

REPORT INFORMATION
  Report Type: Report from Study
  Country: DE (occurrence: DE)
  Receive Date: 20120917
  Receipt Date: 20120926
  Transmission Date: 20130627
  Serious: Yes (Death)
  Sender: FDA-Public Use
  Company Number: PHHY2012DE079918

PATIENT
  Age: 55 Year
  Sex: Female
  Weight: 63 kg

DRUGS (7)
  1. ZOLEDRONATE [Suspect]
     Indication: BONE DISORDER
     Dosage: 4 mg, every 4 weeks
     Route: 042
     Dates: start: 20110714
  2. ZOLEDRONATE [Suspect]
     Dosage: 4 mg, every 4 weeks
     Route: 042
     Dates: start: 20120222
  3. IBUPROFEN [Concomitant]
     Dosage: 600 mg, TID
     Dates: start: 20110627
  4. OMEPRAZOL [Concomitant]
     Dosage: 20 mg, UNK
     Dates: start: 20110704
  5. TRAMAL [Concomitant]
     Dosage: 20 gtt, PRN
     Dates: start: 20110704
  6. MYOCET [Concomitant]
     Dosage: 80 mg, daily
     Dates: start: 20110714, end: 20111025
  7. VINORELBINE [Concomitant]
     Dosage: 40 mg, day 1, 8, 15
     Route: 065
     Dates: start: 20111130, end: 20120220

REACTIONS (3)
  - Neoplasm progression [Fatal]
  - Malignant neoplasm progression [Fatal]
  - General physical health deterioration [Fatal]
